FAERS Safety Report 12422288 (Version 1)
Quarter: 2016Q2

REPORT INFORMATION
  Report Type: Spontaneous
  Country: US (occurrence: US)
  Receive Date: 20160601
  Receipt Date: 20160601
  Transmission Date: 20160815
  Serious: No
  Sender: FDA-Public Use
  Company Number: US-JNJFOC-20160501073

PATIENT

DRUGS (1)
  1. CONCERTA [Suspect]
     Active Substance: METHYLPHENIDATE HYDROCHLORIDE
     Indication: ATTENTION DEFICIT/HYPERACTIVITY DISORDER
     Route: 048
     Dates: start: 20160430

REACTIONS (6)
  - Emotional disorder [Unknown]
  - Palpitations [Unknown]
  - Limb discomfort [Unknown]
  - Feeling abnormal [Unknown]
  - Heart rate increased [Unknown]
  - Mood swings [Unknown]

NARRATIVE: CASE EVENT DATE: 20160430
